FAERS Safety Report 6609594-9 (Version None)
Quarter: 2010Q1

REPORT INFORMATION
  Report Type: 
  Country: None (occurrence: None)
  Receive Date: 20100302
  Receipt Date: 20100217
  Transmission Date: 20100710
  Serious: Yes (Other)
  Sender: FDA-Public Use
  Company Number: MA-BRISTOL-MYERS SQUIBB COMPANY-14984306

PATIENT
  Age: 81 Year
  Sex: Female

DRUGS (2)
  1. HYDROXYUREA [Suspect]
  2. ASPIRIN [Suspect]

REACTIONS (2)
  - HEPATITIS [None]
  - PORPHYRIA NON-ACUTE [None]
